FAERS Safety Report 23090866 (Version 1)
Quarter: 2023Q4

REPORT INFORMATION
  Report Type: Spontaneous
  Country: US (occurrence: US)
  Receive Date: 20231020
  Receipt Date: 20231020
  Transmission Date: 20240110
  Serious: No
  Sender: FDA-Public Use
  Company Number: US-PFIZER INC-PV202300172470

PATIENT
  Age: 26 Year
  Sex: Female

DRUGS (2)
  1. PREMARIN [Suspect]
     Active Substance: ESTROGENS, CONJUGATED
     Indication: Bone marrow transplant
     Dosage: 1.25 MG, 1X/DAY
     Route: 048
     Dates: start: 201710
  2. PREMARIN [Suspect]
     Active Substance: ESTROGENS, CONJUGATED
     Indication: Blood oestrogen decreased

REACTIONS (4)
  - Abdominal pain [Unknown]
  - Skin disorder [Unknown]
  - Irritability [Unknown]
  - Off label use [Unknown]

NARRATIVE: CASE EVENT DATE: 20171001
